FAERS Safety Report 25135253 (Version 1)
Quarter: 2025Q1

REPORT INFORMATION
  Report Type: Spontaneous
  Country: CA (occurrence: CA)
  Receive Date: 20250328
  Receipt Date: 20250328
  Transmission Date: 20250409
  Serious: Yes (Hospitalization, Other)
  Sender: RANBAXY
  Company Number: CA-SUN PHARMACEUTICAL INDUSTRIES LTD-2025R1-501176

PATIENT
  Age: 55 Year
  Sex: Female

DRUGS (2)
  1. METHOTREXATE [Suspect]
     Active Substance: METHOTREXATE
     Indication: Cutaneous vasculitis
     Dosage: 20 MILLIGRAM, WEEKLY
     Route: 065
  2. PREDNISONE [Suspect]
     Active Substance: PREDNISONE
     Indication: Cutaneous vasculitis
     Dosage: 20 MILLIGRAM, DAILY
     Route: 048

REACTIONS (2)
  - Condition aggravated [Unknown]
  - Drug ineffective [Unknown]
